FAERS Safety Report 10243895 (Version 2)
Quarter: 2015Q3

REPORT INFORMATION
  Report Type: Spontaneous
  Country: US (occurrence: US)
  Receive Date: 20140618
  Receipt Date: 20150716
  Transmission Date: 20151125
  Serious: Yes (Other)
  Sender: FDA-Public Use
  Company Number: US-SA-2014SA077720

PATIENT
  Age: 63 Year
  Sex: Female

DRUGS (2)
  1. PLAVIX [Suspect]
     Active Substance: CLOPIDOGREL BISULFATE
     Route: 065
     Dates: start: 20110806, end: 20110809
  2. ASPIRIN. [Concomitant]
     Active Substance: ASPIRIN
     Dates: start: 20110806, end: 20110809

REACTIONS (7)
  - Hypotension [Unknown]
  - Multiple injuries [Unknown]
  - Apparent death [Unknown]
  - Ulcer haemorrhage [Unknown]
  - Syncope [Unknown]
  - Gastrointestinal haemorrhage [Recovered/Resolved]
  - Heart rate increased [Unknown]

NARRATIVE: CASE EVENT DATE: 20110808
